FAERS Safety Report 9210473 (Version 1)
Quarter: 2013Q2

REPORT INFORMATION
  Report Type: Spontaneous
  Country: DE (occurrence: DE)
  Receive Date: 20130404
  Receipt Date: 20130404
  Transmission Date: 20140414
  Serious: Yes (Hospitalization)
  Sender: FDA-Public Use
  Company Number: DE-TEVA-394208GER

PATIENT
  Age: 70 Year
  Sex: Female
  Weight: 70 kg

DRUGS (2)
  1. GEMCITABINE [Suspect]
     Indication: OVARIAN CANCER RECURRENT
     Dosage: 1750 (UNIT NOT SPECIFIED) OVER 30 MINUTES
     Route: 042
  2. CARBO-CELL [Suspect]
     Indication: OVARIAN CANCER RECURRENT
     Dosage: 530 (UNIT NOT SPECIFIED) OVER 30 MINUTES
     Route: 042

REACTIONS (6)
  - Blood pressure increased [Recovering/Resolving]
  - Body temperature increased [Recovering/Resolving]
  - Dyspnoea [Recovering/Resolving]
  - Local swelling [Recovering/Resolving]
  - Rash [Recovering/Resolving]
  - Tachycardia [Recovering/Resolving]
